FAERS Safety Report 5165527-6 (Version None)
Quarter: 2006Q4

REPORT INFORMATION
  Report Type: 
  Country: None (occurrence: None)
  Receive Date: 20061124
  Receipt Date: 20061109
  Transmission Date: 20070319
  Serious: Yes (Hospitalization)
  Sender: FDA-Public Use
  Company Number: 2006140021

PATIENT
  Age: 20 Year
  Sex: Male

DRUGS (1)
  1. DALACIN C (CLINDAMYCIN HYDROCHLORIDE) [Suspect]
     Indication: TOOTH DISORDER

REACTIONS (3)
  - DYSPNOEA [None]
  - ERYTHEMA MIGRANS [None]
  - LOCALISED OEDEMA [None]
